FAERS Safety Report 6397298-X (Version None)
Quarter: 2009Q4

REPORT INFORMATION
  Report Type: 
  Country: None (occurrence: None)
  Receive Date: 20091012
  Receipt Date: 20091007
  Transmission Date: 20100525
  Serious: Yes (Life-Threatening, Hospitalization)
  Sender: FDA-Public Use
  Company Number: FR-ASTRAZENECA-2009SE18606

PATIENT
  Age: 15089 Day
  Sex: Female

DRUGS (5)
  1. MOPRAL [Suspect]
     Indication: ANAESTHETIC PREMEDICATION
     Route: 048
     Dates: start: 20090925, end: 20090925
  2. SUFENTANIL [Suspect]
     Indication: INDUCTION OF ANAESTHESIA
     Route: 042
     Dates: start: 20090925, end: 20090925
  3. NIMBEX [Suspect]
     Indication: INDUCTION OF ANAESTHESIA
     Route: 042
     Dates: start: 20090925, end: 20090925
  4. ATARAX [Suspect]
     Indication: ANAESTHETIC PREMEDICATION
     Route: 048
     Dates: start: 20090925, end: 20090925
  5. PROPOFOL [Concomitant]

REACTIONS (2)
  - CARDIOGENIC SHOCK [None]
  - TORSADE DE POINTES [None]
